FAERS Safety Report 4475845-2 (Version None)
Quarter: 2004Q3

REPORT INFORMATION
  Report Type: 
  Country: None (occurrence: None)
  Receive Date: 20040923
  Receipt Date: 20040709
  Transmission Date: 20050211
  Serious: No
  Sender: FDA-Public Use
  Company Number: USA040772243

PATIENT
  Age: 79 Year
  Sex: Female
  Weight: 59 kg

DRUGS (4)
  1. FORTEO [Suspect]
     Indication: OSTEOPOROSIS
     Dosage: 20 UG DAY
     Dates: start: 20040702
  2. PRILOSEC [Concomitant]
  3. FOSAMAX [Concomitant]
  4. MIACALCIN [Concomitant]

REACTIONS (5)
  - FATIGUE [None]
  - HEADACHE [None]
  - INJECTION SITE ERYTHEMA [None]
  - INJECTION SITE HAEMORRHAGE [None]
  - NAUSEA [None]
